FAERS Safety Report 7547138-8 (Version None)
Quarter: 2011Q2

REPORT INFORMATION
  Report Type: 
  Country: None (occurrence: None)
  Receive Date: 20110614
  Receipt Date: 20110610
  Transmission Date: 20111010
  Serious: Yes (Death, Other)
  Sender: FDA-Public Use
  Company Number: FR-CEPHALON-2011001867

PATIENT
  Sex: Female

DRUGS (1)
  1. FENTANYL CITRATE [Suspect]
     Indication: CANCER PAIN
     Route: 002

REACTIONS (2)
  - NEOPLASM MALIGNANT [None]
  - DRUG PRESCRIBING ERROR [None]
